FAERS Safety Report 10488668 (Version 3)
Quarter: 2014Q4

REPORT INFORMATION
  Report Type: Spontaneous
  Country: US (occurrence: None)
  Receive Date: 20140930
  Receipt Date: 20141110
  Transmission Date: 20150528
  Serious: Yes (Hospitalization, Other)
  Sender: FDA-Public Use
  Company Number: 2014JUB00145

PATIENT
  Age: 50 Year
  Sex: Female
  Weight: 77.1 kg

DRUGS (18)
  1. VITAMIN C [Concomitant]
     Active Substance: ASCORBIC ACID
  2. SOLU-MEDROL [Suspect]
     Active Substance: METHYLPREDNISOLONE SODIUM SUCCINATE
     Indication: ASTHMA
     Dosage: 60 MG (TITER), 4X/DAY, INTRAVENOUS?
     Route: 042
     Dates: start: 20140919
  3. NASONEX [Concomitant]
     Active Substance: MOMETASONE FUROATE
  4. LACTOBACILLUS [Concomitant]
     Active Substance: LACTOBACILLUS ACIDOPHILUS
  5. METHYLPREDNISOLONE. [Suspect]
     Active Substance: METHYLPREDNISOLONE
     Indication: ASTHMA
     Dates: start: 20140910, end: 20140918
  6. CALCIUM [Concomitant]
     Active Substance: CALCIUM
  7. ADVAIR HSA DISKUS [Concomitant]
  8. DUONEBS [Concomitant]
  9. CLARITIN [Concomitant]
     Active Substance: LORATADINE
  10. ZITHROMAX [Concomitant]
     Active Substance: AZITHROMYCIN DIHYDRATE
  11. VITAMIN B12 [Concomitant]
     Active Substance: CYANOCOBALAMIN
  12. VITAMIN D3 [Concomitant]
     Active Substance: CHOLECALCIFEROL
  13. HYDROCORTISONE. [Concomitant]
     Active Substance: HYDROCORTISONE
     Dosage: 7.5 MG, 1X/DAY
  14. PRILOSEC [Concomitant]
     Active Substance: OMEPRAZOLE MAGNESIUM
  15. ZANTAC [Concomitant]
     Active Substance: RANITIDINE HYDROCHLORIDE
  16. TESSALON [Concomitant]
     Active Substance: BENZONATATE
  17. PULMICORT TURBUHALER [Concomitant]
     Active Substance: BUDESONIDE
  18. EVISTA [Concomitant]
     Active Substance: RALOXIFENE HYDROCHLORIDE

REACTIONS (10)
  - Asthma [None]
  - Leukocytosis [None]
  - Hypersensitivity [None]
  - Oxygen saturation decreased [None]
  - Chest discomfort [None]
  - Oral candidiasis [None]
  - Hypertension [None]
  - Dysphagia [None]
  - Oedema peripheral [None]
  - Anaemia of chronic disease [None]

NARRATIVE: CASE EVENT DATE: 201409
